FAERS Safety Report 15307862 (Version 1)
Quarter: 2018Q3

REPORT INFORMATION
  Report Type: Spontaneous
  Country: US (occurrence: US)
  Receive Date: 20180822
  Receipt Date: 20180822
  Transmission Date: 20181010
  Serious: No
  Sender: FDA-Public Use
  Company Number: US-BECTON DICKINSON-2018BDN00059

PATIENT
  Age: 49 Year
  Sex: Male
  Weight: 102.4 kg

DRUGS (1)
  1. CHLORAPREP WITH TINT [Suspect]
     Active Substance: CHLORHEXIDINE GLUCONATE\ISOPROPYL ALCOHOL
     Indication: INFECTION PROPHYLAXIS
     Dosage: 26 ML, ONCE
     Route: 061
     Dates: start: 20180307, end: 20180307

REACTIONS (3)
  - Petechiae [Unknown]
  - Pruritus [Unknown]
  - Application site vesicles [Unknown]

NARRATIVE: CASE EVENT DATE: 201803
